FAERS Safety Report 6091581-3 (Version None)
Quarter: 2009Q1

REPORT INFORMATION
  Report Type: 
  Country: None (occurrence: None)
  Receive Date: 20090225
  Receipt Date: 20080319
  Transmission Date: 20090719
  Serious: No
  Sender: FDA-Public Use
  Company Number: A0705575A

PATIENT
  Age: 33 Year
  Sex: Male

DRUGS (1)
  1. VALTREX [Suspect]
     Indication: GENITAL HERPES
     Dosage: 1G PER DAY
     Route: 048

REACTIONS (2)
  - ERECTILE DYSFUNCTION [None]
  - NERVE INJURY [None]
